FAERS Safety Report 9066114 (Version 3)
Quarter: 2013Q4

REPORT INFORMATION
  Report Type: Report from Study
  Country: JP (occurrence: JP)
  Receive Date: 20130214
  Receipt Date: 20131214
  Transmission Date: 20140711
  Serious: Yes (Hospitalization)
  Sender: FDA-Public Use
  Company Number: JP-009507513-1302JPN005251

PATIENT
  Age: 54 Year
  Sex: Male
  Weight: 60 kg

DRUGS (15)
  1. REBETOL [Suspect]
     Indication: CHRONIC HEPATITIS C
     Dosage: 600 MG DAILY (MORNING 200MG EVENING 400MG)
     Route: 048
     Dates: start: 20110820, end: 20111214
  2. FERON [Suspect]
     Indication: CHRONIC HEPATITIS C
     Dosage: 6 MILLION IU, 6 X PER WEEK
     Route: 041
     Dates: start: 20110820, end: 20110902
  3. FERON [Suspect]
     Dosage: 6 MILLION IU, 3XPER WEEK
     Route: 041
     Dates: start: 20110905, end: 20111214
  4. SENNOSIDES [Concomitant]
     Indication: CONSTIPATION
     Dosage: 1 DF, PRN
     Route: 048
     Dates: start: 20110818, end: 20110828
  5. MEILAX [Concomitant]
     Indication: INSOMNIA
     Dosage: 2MG DAILY; DIVIDED DOSE FREQUENCY UNKNOWN
     Route: 048
     Dates: start: 20110823, end: 20111215
  6. CYMBALTA [Concomitant]
     Indication: DEPRESSION
     Dosage: 40 MG DAILY, DIVIDED DOSE FREQUENCY UNKNOWN
     Route: 048
     Dates: start: 20110826, end: 20111215
  7. DESYREL [Concomitant]
     Indication: DEPRESSIVE SYMPTOM
     Dosage: FORMULATION: POR; 150 MG DAILY,DIVIDED DOSE FREQUENCY UNKNOWN, FORMULATION: POR
     Route: 048
     Dates: end: 20111215
  8. AMLODIN (AMLODIPINE BESYLATE) [Concomitant]
     Indication: HYPERTENSION
     Dosage: FORMULATION:POR; 5MG DAILY; DIVIDED DOSE FREQUENCY UNKNOWN, FORMULATION: POR
     Route: 048
     Dates: start: 20120831, end: 20120906
  9. LOXONIN [Concomitant]
     Indication: PYREXIA
     Dosage: 1 DF DAILY, FORMULATION: POR
     Route: 048
     Dates: start: 20110821, end: 20111215
  10. FLOMOX [Concomitant]
     Indication: CELLULITIS
     Dosage: 300 MG DAILY; FORMULATION: POR
     Route: 048
     Dates: start: 20111129, end: 20111212
  11. MINOMYCIN [Concomitant]
     Indication: CELLULITIS
     Dosage: 100 MG DAILY; FORMULATION: POR
     Route: 048
     Dates: start: 20111213, end: 20111215
  12. NOVORAPID [Concomitant]
     Indication: DIABETES MELLITUS
     Dosage: DOSE: 48 (UNDER 1000 UNIT) DAILY; MORNING: 16UNITS, NOON: 16 UNITS, EVENING: 16UNITS
     Route: 051
     Dates: start: 1987, end: 20111215
  13. NOVORAPID [Concomitant]
     Dosage: DOSE: 54 (UNDER 1000 UNIT) DAILY; MORNING: 18UNITS, NOON: 18 UNITS, EVENING: 18UNITS
     Route: 051
     Dates: start: 20111216
  14. FLEX [Concomitant]
     Indication: DIABETES MELLITUS
     Dosage: DOSE: 48 (UNDER 1000 UNIT) DAILY; MORNING: 16UNITS, NOON: 16 UNITS, EVENING: 16UNITS
     Route: 051
     Dates: start: 1987, end: 20111215
  15. FLEX [Concomitant]
     Dosage: DOSE: 54 (UNDER 1000 UNIT) DAILY; MORNING: 18UNITS, NOON: 18 UNITS, EVENING: 18UNITS
     Route: 051
     Dates: start: 20111216

REACTIONS (9)
  - Depression [Unknown]
  - Anxiety [Unknown]
  - Pyrexia [Not Recovered/Not Resolved]
  - Malaise [Recovering/Resolving]
  - Cellulitis [Unknown]
  - Subcutaneous haematoma [Recovering/Resolving]
  - Dizziness [Recovered/Resolved]
  - Protein urine [Not Recovered/Not Resolved]
  - Diabetes mellitus [Not Recovered/Not Resolved]
